FAERS Safety Report 7412982-4 (Version None)
Quarter: 2011Q2

REPORT INFORMATION
  Report Type: 
  Country: None (occurrence: None)
  Receive Date: 20110408
  Receipt Date: 20110408
  Transmission Date: 20111010
  Serious: Yes (Other)
  Sender: FDA-Public Use
  Company Number: None

PATIENT
  Age: 47 Year
  Sex: Female
  Weight: 54.4316 kg

DRUGS (1)
  1. TRIMETHOPRIM POLYMYXNSOL BSC  BAUSCH + LOMB [Suspect]
     Indication: EYE INFECTION
     Dosage: 2 DROPS IN AFFECTED EYE-S- EVERY 3 HOURS OPHTHALMIC
     Route: 047
     Dates: start: 20110323, end: 20110323

REACTIONS (4)
  - EYE PRURITUS [None]
  - OCULAR HYPERAEMIA [None]
  - LACRIMATION INCREASED [None]
  - EYE SWELLING [None]
